FAERS Safety Report 9350953 (Version 1)
Quarter: 2013Q2

REPORT INFORMATION
  Report Type: Spontaneous
  Country: US (occurrence: US)
  Receive Date: 20130617
  Receipt Date: 20130617
  Transmission Date: 20140414
  Serious: Yes (Hospitalization, Other)
  Sender: FDA-Public Use
  Company Number: US-ROCHE-782195

PATIENT
  Sex: Female
  Weight: 64.4 kg

DRUGS (3)
  1. CELLCEPT [Suspect]
     Indication: LUNG TRANSPLANT
     Route: 048
  2. PROGRAF [Concomitant]
     Indication: LUNG TRANSPLANT
     Route: 065
  3. FAMVIR [Concomitant]

REACTIONS (19)
  - Diarrhoea [Recovered/Resolved]
  - Dyspepsia [Unknown]
  - Transplant rejection [Recovered/Resolved]
  - Feeling abnormal [Recovered/Resolved]
  - Anxiety [Recovered/Resolved]
  - Restlessness [Recovered/Resolved]
  - Dyspepsia [Recovered/Resolved]
  - Epstein-Barr virus infection [Recovering/Resolving]
  - Fatigue [Recovered/Resolved]
  - Vascular fragility [Unknown]
  - Lymphadenopathy [Recovered/Resolved]
  - Metaplasia [Unknown]
  - Mucosal inflammation [Unknown]
  - Gastritis [Unknown]
  - Headache [Not Recovered/Not Resolved]
  - Sinusitis [Unknown]
  - Nervousness [Recovered/Resolved]
  - Blood magnesium decreased [Unknown]
  - Viral load increased [Unknown]
